FAERS Safety Report 6556041-1 (Version None)
Quarter: 2010Q1

REPORT INFORMATION
  Report Type: 
  Country: None (occurrence: None)
  Receive Date: 20100128
  Receipt Date: 20090320
  Transmission Date: 20100710
  Serious: Yes (Other)
  Sender: FDA-Public Use
  Company Number: US-TEVA-185573USA

PATIENT
  Sex: Male

DRUGS (11)
  1. COPAXONE [Suspect]
     Indication: MULTIPLE SCLEROSIS
     Route: 058
     Dates: start: 20080501, end: 20081015
  2. TRAMADOL [Concomitant]
  3. METHADONE [Concomitant]
  4. PREGABALIN [Concomitant]
  5. LIDOCAINE [Concomitant]
  6. VENLAFAXINE HCL [Concomitant]
  7. MODAFINIL [Concomitant]
  8. PANTOPRAZOLE [Concomitant]
  9. OXYCODONE [Concomitant]
  10. CYANOCOBALAMIN [Concomitant]
  11. CALCIUM [Concomitant]

REACTIONS (1)
  - ANAPHYLACTIC REACTION [None]
